FAERS Safety Report 4785123-X (Version None)
Quarter: 2005Q3

REPORT INFORMATION
  Report Type: 
  Country: None (occurrence: None)
  Receive Date: 20050928
  Receipt Date: 20050914
  Transmission Date: 20060218
  Serious: Yes (Hospitalization)
  Sender: FDA-Public Use
  Company Number: DE-2005-012020

PATIENT
  Age: 50 Year
  Sex: Female
  Weight: 65 kg

DRUGS (5)
  1. BETASERON [Suspect]
     Indication: MULTIPLE SCLEROSIS
     Dosage: SEE IMAGE
     Route: 058
     Dates: start: 19990401, end: 20050622
  2. BETASERON [Suspect]
     Indication: MULTIPLE SCLEROSIS
     Dosage: SEE IMAGE
     Route: 058
     Dates: start: 20050620, end: 20050622
  3. ACCUZIDE (QUINAPRIL HYDROCHLORIDE) [Concomitant]
  4. PARACETAMOL [Concomitant]
  5. STILNOX /FRA/ (ZOLPIDEM) [Concomitant]

REACTIONS (7)
  - ANAPHYLACTIC REACTION [None]
  - ASTHENIA [None]
  - BLISTER [None]
  - HEREDITARY ANGIOEDEMA [None]
  - HYPERSENSITIVITY [None]
  - INJECTION SITE REACTION [None]
  - NONSPECIFIC REACTION [None]
